FAERS Safety Report 15563289 (Version 4)
Quarter: 2018Q4

REPORT INFORMATION
  Report Type: Spontaneous
  Country: FR (occurrence: FR)
  Receive Date: 20181029
  Receipt Date: 20181213
  Transmission Date: 20190205
  Serious: Yes (Hospitalization)
  Sender: FDA-Public Use
  Company Number: FR-PFIZER INC-2018155748

PATIENT
  Age: 89 Year
  Sex: Male
  Weight: 74 kg

DRUGS (24)
  1. VENETOCLAX. [Suspect]
     Active Substance: VENETOCLAX
     Indication: ACUTE MYELOID LEUKAEMIA
     Dosage: 1 DF, DAILY
     Route: 048
     Dates: start: 20171211
  2. INDAPAMIDE. [Concomitant]
     Active Substance: INDAPAMIDE
     Indication: HYPERTENSION
     Dosage: 1.5 MG, 1X/DAY  (1.5 MG, 1 IN 1 D)
     Route: 048
     Dates: start: 20171204
  3. CIFLOX [Concomitant]
     Active Substance: CIPROFLOXACIN
     Indication: INFLAMMATION
     Dosage: 500 MG, 2X/DAY
     Route: 048
     Dates: start: 20180120, end: 20180226
  4. CYTARABINE. [Suspect]
     Active Substance: CYTARABINE
     Indication: ACUTE MYELOID LEUKAEMIA
     Dosage: 20 MG/M2, CYCLIC (DAILY ON DAYS 1 TO 10 OF 28 DAY CYCLE)
     Route: 058
     Dates: start: 20171211
  5. EXFORGE [Concomitant]
     Active Substance: AMLODIPINE BESYLATE\VALSARTAN
     Indication: HYPERTENSION
     Dosage: 5/160 MILLIGRAMS (1 IN 1 D)
     Route: 048
     Dates: start: 20171204
  6. LERCAN [Concomitant]
     Active Substance: LERCANIDIPINE
     Indication: HYPERTENSION
     Dosage: 10 MG, 1X/DAY  (10 MG,1 IN 1 D)
     Route: 048
     Dates: start: 20171204
  7. CIFLOX [Concomitant]
     Active Substance: CIPROFLOXACIN
     Indication: PYREXIA
     Dosage: UNK
     Dates: start: 20180314, end: 20180320
  8. LASILIX [FUROSEMIDE] [Concomitant]
     Active Substance: FUROSEMIDE
     Indication: OEDEMA PERIPHERAL
     Dosage: 20 MG, DAILY
     Route: 048
     Dates: start: 20180221
  9. ZELITREX [Concomitant]
     Active Substance: VALACYCLOVIR HYDROCHLORIDE
     Indication: ANTIVIRAL PROPHYLAXIS
     Dosage: 500 MG, 2X/DAY (500 MG,2 IN 1 D)
     Route: 048
     Dates: start: 20171207
  10. PARACETAMOL [Concomitant]
     Active Substance: ACETAMINOPHEN
     Indication: PAIN
     Dosage: UNK
     Route: 048
     Dates: start: 20180504, end: 20180514
  11. TAMSULOSIN HYDROCHLORIDE. [Concomitant]
     Active Substance: TAMSULOSIN HYDROCHLORIDE
     Indication: RENAL DISORDER
     Dosage: 0.4 MG, 1X/DAY (0.4 MG, 1 IN 1 D)
     Route: 048
     Dates: start: 20171204
  12. ESOMEPRAZOLE. [Concomitant]
     Active Substance: ESOMEPRAZOLE MAGNESIUM
     Indication: GASTROOESOPHAGEAL REFLUX DISEASE
     Dosage: 20 MG, 1X/DAY (20 MG, 1 IN 1 D)
     Route: 048
     Dates: start: 20171204
  13. AUGMENTIN [Concomitant]
     Active Substance: AMOXICILLIN\CLAVULANATE POTASSIUM
     Indication: PROPHYLAXIS
     Dosage: 500 MG, 3X/DAY
     Route: 048
     Dates: start: 20180120, end: 20180228
  14. AUGMENTIN [Concomitant]
     Active Substance: AMOXICILLIN\CLAVULANATE POTASSIUM
     Indication: PYREXIA
     Dosage: UNK
     Dates: start: 20180314, end: 20180316
  15. ROCEPHINE [Concomitant]
     Active Substance: CEFTRIAXONE SODIUM
     Indication: FEBRILE INFECTION
     Dosage: 2 G, 1X/DAY (2 GM, 1 IN 1 D)
     Dates: start: 20180316, end: 20180320
  16. ONDANSETRON [Concomitant]
     Active Substance: ONDANSETRON
     Indication: NAUSEA
     Dosage: 8 MG, AS NEEDED
     Route: 048
     Dates: start: 20180413
  17. AMLOR [Concomitant]
     Active Substance: AMLODIPINE BESYLATE
     Indication: HYPERTENSION
     Dosage: 5 MG, DAILY
     Route: 048
     Dates: start: 20180412
  18. NORMAL SALINE [Concomitant]
     Active Substance: SODIUM CHLORIDE
     Indication: PROPHYLAXIS
     Dosage: 20000 ML, UNK
     Route: 041
     Dates: start: 20171211, end: 20171220
  19. ALLOPURINOL. [Concomitant]
     Active Substance: ALLOPURINOL
     Indication: PROPHYLAXIS
     Dosage: 200 MG, UNK
     Route: 048
     Dates: start: 20171207, end: 20171220
  20. SEDORRHOIDE [Concomitant]
     Indication: HAEMORRHOIDS
     Dosage: 3 DF, DAILY
     Route: 061
     Dates: start: 20180512
  21. ROCEPHINE [Concomitant]
     Active Substance: CEFTRIAXONE SODIUM
     Indication: PYREXIA
  22. CIPROFLOXACIN. [Concomitant]
     Active Substance: CIPROFLOXACIN
     Indication: PYREXIA
     Dosage: UNK
     Dates: start: 20180314
  23. CLAMOXYL [Concomitant]
     Indication: PROPHYLAXIS
     Dosage: 500 MG, 2X/DAY (500 MG ,2 IN 1 D)
     Route: 048
     Dates: start: 20171207, end: 20180316
  24. DAFLON [Concomitant]
     Indication: HAEMORRHOIDS
     Dosage: 500 MG, 3X/DAY (500 MG, 3 IN 1 D)
     Route: 048
     Dates: start: 20180514

REACTIONS (5)
  - Febrile neutropenia [Recovered/Resolved]
  - Pyrexia [Recovered/Resolved]
  - Pyrexia [Recovered/Resolved]
  - Pyrexia [Recovered/Resolved]
  - Pyrexia [Recovered/Resolved]

NARRATIVE: CASE EVENT DATE: 20180215
